FAERS Safety Report 7651609-3 (Version None)
Quarter: 2011Q3

REPORT INFORMATION
  Report Type: 
  Country: None (occurrence: None)
  Receive Date: 20110802
  Receipt Date: 20110720
  Transmission Date: 20111222
  Serious: Yes (Hospitalization)
  Sender: FDA-Public Use
  Company Number: AT-MYLANLABS-2011S1015188

PATIENT
  Age: 67 Year
  Sex: Male

DRUGS (3)
  1. LAMOTRIGINE [Suspect]
     Dosage: 300 MG/DAY
     Route: 065
  2. LAMOTRIGINE [Suspect]
     Indication: EPILEPSY
     Dosage: 100 MG/DAY; INCREASED TO 200MG IN DECEMBER 2008
     Route: 065
  3. LAMOTRIGINE [Suspect]
     Dosage: 200 MG; INCREASED TO 300 MG/DAY TWO WEEKS LATER
     Route: 065

REACTIONS (1)
  - HYPERTROPHIC CARDIOMYOPATHY [None]
